FAERS Safety Report 15726793 (Version 1)
Quarter: 2018Q4

REPORT INFORMATION
  Report Type: Spontaneous
  Country: DK (occurrence: DK)
  Receive Date: 20181217
  Receipt Date: 20181217
  Transmission Date: 20190205
  Serious: Yes (Hospitalization, Other)
  Sender: FDA-Public Use
  Company Number: DK-ACCORD-096236

PATIENT
  Age: 59 Year
  Sex: Female

DRUGS (8)
  1. KREON [Concomitant]
     Active Substance: PANCRELIPASE
     Indication: ENZYME SUPPLEMENTATION
     Dosage: STYRKE: 25.000 EP-E
     Route: 048
     Dates: start: 20170623
  2. PAMOL [Concomitant]
     Active Substance: ACETAMINOPHEN
     Indication: PAIN
     Dosage: STYRKE: 500 MG.
     Route: 048
     Dates: start: 20170406
  3. OXYCODONE/OXYCODONE HYDROCHLORIDE/OXYCODONE PECTINATE/OXYCODONE TEREPHTHALATE [Concomitant]
     Indication: PAIN
     Dosage: STRENGTH: 5 MG. DOSE: 1 TABLET, IF REQUIRED MAX 6X DAILY.
     Route: 048
     Dates: start: 20170427
  4. PANTOPRAZOLE SODIUM. [Concomitant]
     Active Substance: PANTOPRAZOLE SODIUM
     Indication: GASTROOESOPHAGEAL REFLUX DISEASE
     Dosage: STYRKE 40 MG
     Route: 048
     Dates: start: 20170125
  5. GEMCITABIN ACCORD [Suspect]
     Active Substance: GEMCITABINE\GEMCITABINE HYDROCHLORIDE
     Indication: PANCREATIC CARCINOMA
     Dosage: STRENGTH: 1 G.
     Route: 042
     Dates: start: 20170803, end: 20171221
  6. IMOLOPE [Concomitant]
     Indication: DIARRHOEA
     Dosage: STRENGTH: 2 MG. DOSE: 1 TABL.  AS REQUIRED.
     Route: 048
     Dates: start: 20170704
  7. VAGIFEM [Concomitant]
     Active Substance: ESTRADIOL
     Indication: HORMONE THERAPY
     Dosage: STRENGTH: 10 MICROGRAMS. DOSE: 1 VAGINAL TABLET DAILY DAY 1-4 AND THEN BREAK FOR 3 DAYS.
     Route: 067
  8. LORAZEPAM. [Concomitant]
     Active Substance: LORAZEPAM
     Indication: INSOMNIA
     Dosage: STYRKE: 1 MG
     Route: 048
     Dates: start: 20171026

REACTIONS (4)
  - Dehydration [Unknown]
  - Renal failure [Not Recovered/Not Resolved]
  - Anaemia [Unknown]
  - Blood creatinine increased [Recovering/Resolving]

NARRATIVE: CASE EVENT DATE: 201801
